FAERS Safety Report 5323072-9 (Version None)
Quarter: 2007Q2

REPORT INFORMATION
  Report Type: 
  Country: None (occurrence: None)
  Receive Date: 20070507
  Receipt Date: 20070419
  Transmission Date: 20071010
  Serious: Yes (Other)
  Sender: FDA-Public Use
  Company Number: 07052098

PATIENT
  Age: 14 Year
  Sex: Female

DRUGS (1)
  1. OVIDE TOPICAL LOTION 0.0.5% 59ML [Suspect]
     Indication: LICE INFESTATION
     Dosage: 59L, TWICE, TOPICAL
     Route: 061

REACTIONS (7)
  - ANOREXIA [None]
  - BLOOD POTASSIUM DECREASED [None]
  - BLOOD SODIUM DECREASED [None]
  - DIARRHOEA [None]
  - GASTROINTESTINAL DISORDER [None]
  - HAEMATOCRIT DECREASED [None]
  - PYREXIA [None]
